FAERS Safety Report 13657197 (Version 1)
Quarter: 2017Q2

REPORT INFORMATION
  Report Type: Report from Study
  Country: BR (occurrence: BR)
  Receive Date: 20170615
  Receipt Date: 20170615
  Transmission Date: 20170830
  Serious: Yes (Other)
  Sender: FDA-Public Use
  Company Number: PHHY2017BR087754

PATIENT
  Sex: Female

DRUGS (2)
  1. FORASEQ [Suspect]
     Active Substance: BUDESONIDE\FORMOTEROL FUMARATE
     Indication: PRODUCT USED FOR UNKNOWN INDICATION
     Dosage: QOD
     Route: 065
  2. ULTIBRO BREEZHALER [Suspect]
     Active Substance: GLYCOPYRRONIUM\INDACATEROL
     Indication: BRONCHIECTASIS
     Dosage: 1 DF (INDACATEROL 110 UG/ GLYCOPYRRONIUM BROMIDE 50 UG), QD
     Route: 055

REACTIONS (5)
  - Inappropriate schedule of drug administration [Unknown]
  - Pneumonia [Unknown]
  - Malnutrition [Unknown]
  - Dehydration [Unknown]
  - Product use in unapproved indication [Unknown]
